FAERS Safety Report 5606641-8 (Version None)
Quarter: 2008Q1

REPORT INFORMATION
  Report Type: 
  Country: None (occurrence: None)
  Receive Date: 20080129
  Receipt Date: 20080107
  Transmission Date: 20080703
  Serious: Yes (Death, Hospitalization)
  Sender: FDA-Public Use
  Company Number: GB-ROCHE-539598

PATIENT
  Age: 36 Year
  Sex: Male

DRUGS (2)
  1. XELODA [Suspect]
     Indication: COLON CANCER
     Route: 065
  2. PAZOPANIB [Suspect]
     Indication: DRUG USE FOR UNKNOWN INDICATION
     Route: 065

REACTIONS (3)
  - DEATH [None]
  - FALL [None]
  - NONSPECIFIC REACTION [None]
